FAERS Safety Report 13071290 (Version 4)
Quarter: 2017Q1

REPORT INFORMATION
  Report Type: Report from Study
  Country: US (occurrence: US)
  Receive Date: 20161229
  Receipt Date: 20170213
  Transmission Date: 20170428
  Serious: Yes (Hospitalization, Other)
  Sender: FDA-Public Use
  Company Number: US-GILEAD-2016-0249489

PATIENT
  Age: 62 Year
  Sex: Female

DRUGS (13)
  1. AMBRISENTAN [Suspect]
     Active Substance: AMBRISENTAN
     Indication: PULMONARY ARTERIAL HYPERTENSION
     Dosage: 10 MG, QD
     Route: 065
     Dates: start: 20151215
  2. LACTULOSE. [Concomitant]
     Active Substance: LACTULOSE
  3. ALDACTONE [Concomitant]
     Active Substance: SPIRONOLACTONE
  4. TYVASO [Concomitant]
     Active Substance: TREPROSTINIL
  5. SILDENAFIL. [Concomitant]
     Active Substance: SILDENAFIL
  6. BUMETANIDE. [Concomitant]
     Active Substance: BUMETANIDE
  7. REVATIO [Concomitant]
     Active Substance: SILDENAFIL CITRATE
  8. UPTRAVI [Concomitant]
     Active Substance: SELEXIPAG
  9. OMEPRAZOLE. [Concomitant]
     Active Substance: OMEPRAZOLE
  10. HYDROXYZINE [Concomitant]
     Active Substance: HYDROXYZINE HYDROCHLORIDE
  11. LEVOTHYROXINE. [Concomitant]
     Active Substance: LEVOTHYROXINE
  12. XIFAXAN [Concomitant]
     Active Substance: RIFAXIMIN
  13. FLONASE                            /00908302/ [Concomitant]
     Active Substance: MOMETASONE FUROATE

REACTIONS (14)
  - Amnesia [Unknown]
  - Limb discomfort [Unknown]
  - Ammonia increased [Unknown]
  - Platelet count decreased [Unknown]
  - Dizziness [Not Recovered/Not Resolved]
  - Ammonia increased [Unknown]
  - Pulmonary hypertension [Unknown]
  - Ammonia increased [Unknown]
  - Fatigue [Recovering/Resolving]
  - Abdominal distension [Unknown]
  - Hepatic cirrhosis [Unknown]
  - Encephalopathy [Unknown]
  - Blood sodium decreased [Unknown]
  - Balance disorder [Not Recovered/Not Resolved]

NARRATIVE: CASE EVENT DATE: 201611
